FAERS Safety Report 20136492 (Version 1)
Quarter: 2021Q4

REPORT INFORMATION
  Report Type: Spontaneous
  Country: US (occurrence: US)
  Receive Date: 20211201
  Receipt Date: 20211201
  Transmission Date: 20220303
  Serious: Yes (Other)
  Sender: FDA-Public Use
  Company Number: US-BAYER-2021A257371

PATIENT
  Age: 31 Year
  Sex: Female

DRUGS (1)
  1. CHLORPHENIRAMINE MALEATE\DEXTROMETHORPHAN HYDROBROMIDE [Suspect]
     Active Substance: CHLORPHENIRAMINE MALEATE\DEXTROMETHORPHAN HYDROBROMIDE

REACTIONS (4)
  - Acute psychosis [None]
  - Toxicity to various agents [None]
  - Serotonin syndrome [None]
  - Overdose [None]
